FAERS Safety Report 7562163-9 (Version None)
Quarter: 2011Q2

REPORT INFORMATION
  Report Type: 
  Country: None (occurrence: None)
  Receive Date: 20110620
  Receipt Date: 20110620
  Transmission Date: 20111010
  Serious: Yes (Other)
  Sender: FDA-Public Use
  Company Number: None

PATIENT
  Sex: Female

DRUGS (1)
  1. TYKERB [Suspect]
     Dosage: 250 MG PO
     Route: 048

REACTIONS (3)
  - ASTHENIA [None]
  - MOVEMENT DISORDER [None]
  - RASH GENERALISED [None]
